FAERS Safety Report 10145569 (Version 5)
Quarter: 2014Q3

REPORT INFORMATION
  Report Type: Report from Study
  Country: RO (occurrence: RO)
  Receive Date: 20140501
  Receipt Date: 20140805
  Transmission Date: 20150326
  Serious: Yes (Hospitalization)
  Sender: FDA-Public Use
  Company Number: RO-JNJFOC-20140419497

PATIENT
  Age: 72 Year
  Sex: Male
  Weight: 84 kg

DRUGS (17)
  1. ABIRATERONE ACETATE [Suspect]
     Active Substance: ABIRATERONE ACETATE
     Route: 048
  2. ASPENTER [Concomitant]
     Active Substance: ASPIRIN
     Indication: HYPERTENSION
     Route: 065
     Dates: start: 20140426
  3. ASPACARDIN [Concomitant]
     Indication: HYPOCALCAEMIA
     Route: 065
     Dates: start: 20140123, end: 20140319
  4. ABIRATERONE ACETATE [Suspect]
     Active Substance: ABIRATERONE ACETATE
     Indication: PROSTATE CANCER
     Route: 048
     Dates: start: 20120211, end: 20140417
  5. KCL [Concomitant]
     Active Substance: POTASSIUM CHLORIDE
     Indication: HYPOCALCAEMIA
     Route: 065
     Dates: start: 20120509, end: 20120512
  6. NORVASC [Concomitant]
     Active Substance: AMLODIPINE BESYLATE
     Indication: HYPERTENSION
     Route: 065
     Dates: start: 20120410
  7. KCL [Concomitant]
     Active Substance: POTASSIUM CHLORIDE
     Indication: HYPOCALCAEMIA
     Route: 065
     Dates: start: 20140108, end: 20140110
  8. ASPACARDIN [Concomitant]
     Indication: HYPOCALCAEMIA
     Route: 065
     Dates: start: 20140117, end: 20140122
  9. PRESTARIUM [Concomitant]
     Active Substance: PERINDOPRIL
     Indication: HYPERTENSION
     Route: 065
     Dates: start: 20140426
  10. KCL [Concomitant]
     Active Substance: POTASSIUM CHLORIDE
     Indication: HYPOCALCAEMIA
     Route: 065
     Dates: start: 20140113, end: 20140116
  11. ASPACARDIN [Concomitant]
     Indication: HYPOCALCAEMIA
     Route: 065
     Dates: start: 20140320
  12. SIMVASTATIN. [Concomitant]
     Active Substance: SIMVASTATIN
     Indication: HYPERTENSION
     Route: 065
     Dates: start: 20140426
  13. ASPACARDIN [Concomitant]
     Indication: HYPOCALCAEMIA
     Route: 065
     Dates: start: 20120514, end: 20140110
  14. TERTENSIF [Concomitant]
     Indication: HYPERTENSION
     Route: 065
     Dates: start: 20120410
  15. INDAPAMID [Concomitant]
     Active Substance: INDAPAMIDE
     Indication: HYPERTENSION
     Route: 065
     Dates: start: 20120410
  16. PREDNISONE. [Suspect]
     Active Substance: PREDNISONE
     Indication: PROSTATE CANCER
     Route: 048
     Dates: start: 20120211
  17. ASPACARDIN [Concomitant]
     Indication: HYPOCALCAEMIA
     Route: 065
     Dates: start: 20140111, end: 20140112

REACTIONS (2)
  - Hypokalaemia [Recovered/Resolved]
  - Vertigo [Recovered/Resolved]

NARRATIVE: CASE EVENT DATE: 20140417
